FAERS Safety Report 8843564 (Version 2)
Quarter: 2012Q4

REPORT INFORMATION
  Report Type: 
  Country: IL (occurrence: IL)
  Receive Date: 20121016
  Receipt Date: 20121123
  Transmission Date: 20130627
  Serious: Yes (Hospitalization)
  Sender: FDA-Public Use
  Company Number: PHHO2012IL014909

PATIENT
  Age: 79 Year
  Sex: Male
  Weight: 87.5 kg

DRUGS (10)
  1. ACETYLSALICYLIC ACID [Suspect]
     Indication: THROMBOSIS PROPHYLAXIS
     Dosage: 100 mg, QD
     Dates: start: 19950917
  2. BLINDED ENALAPRIL [Suspect]
     Indication: CARDIAC FAILURE CHRONIC
     Dosage: Double blinded
     Route: 048
     Dates: start: 20110111
  3. BLINDED LCZ696 [Suspect]
     Indication: CARDIAC FAILURE CHRONIC
     Dosage: Double blinded
     Route: 048
     Dates: start: 20110111
  4. BLINDED NO TREATMENT RECEIVED [Suspect]
     Indication: CARDIAC FAILURE CHRONIC
     Dosage: Double blinded
     Route: 048
     Dates: start: 20110111
  5. WARFARIN [Suspect]
     Indication: THROMBOSIS PROPHYLAXIS
     Dosage: UNK
     Dates: start: 20050920
  6. CARDILOC [Concomitant]
     Indication: CARDIAC FAILURE CHRONIC
     Dosage: 2.5 mg, QD
     Dates: start: 20100715
  7. LOSEC                                   /CAN/ [Concomitant]
  8. ALDACTONE [Concomitant]
     Indication: CARDIAC FAILURE CHRONIC
     Dosage: 25 mg, QD
     Route: 048
     Dates: end: 20121015
  9. FUSID [Concomitant]
     Indication: CARDIAC FAILURE CHRONIC
     Dosage: 80 g, QD
     Dates: start: 20120206, end: 20121015
  10. ZAROXOLYN [Concomitant]
     Indication: CARDIAC FAILURE CHRONIC
     Dosage: 2.5 mg, QW4
     Dates: start: 20120711

REACTIONS (1)
  - Anaemia [Recovered/Resolved]
